FAERS Safety Report 21880446 (Version 2)
Quarter: 2023Q1

REPORT INFORMATION
  Report Type: Spontaneous
  Country: US (occurrence: US)
  Receive Date: 20230118
  Receipt Date: 20230124
  Transmission Date: 20230417
  Serious: No
  Sender: FDA-Public Use
  Company Number: US-TEVA-2023-US-2845645

PATIENT
  Sex: Female

DRUGS (1)
  1. DEFERASIROX [Suspect]
     Active Substance: DEFERASIROX
     Indication: Iron metabolism disorder
     Dosage: 500 MG,TABLETS FOR ORAL SUSPENSION
     Route: 065
     Dates: start: 201610

REACTIONS (3)
  - Blood iron increased [Unknown]
  - Product physical issue [Unknown]
  - Product solubility abnormal [Unknown]
